FAERS Safety Report 6889782-7 (Version None)
Quarter: 2010Q3

REPORT INFORMATION
  Report Type: 
  Country: None (occurrence: None)
  Receive Date: 20100730
  Receipt Date: 20080421
  Transmission Date: 20110219
  Serious: No
  Sender: FDA-Public Use
  Company Number: US-PFIZER INC-2008035298

PATIENT
  Sex: Female
  Weight: 61.363 kg

DRUGS (5)
  1. LIPITOR [Suspect]
     Indication: BLOOD CHOLESTEROL ABNORMAL
     Dates: start: 19980101
  2. SITAGLIPTIN [Concomitant]
     Indication: DIABETES MELLITUS
  3. METAGLIP [Concomitant]
     Indication: DIABETES MELLITUS
  4. AMITRIPTYLINE HYDROCHLORIDE [Concomitant]
  5. HYDROCHLOROTHIAZIDE [Concomitant]
     Indication: HYPERTENSION

REACTIONS (1)
  - MUSCLE SPASMS [None]
